FAERS Safety Report 22252350 (Version 1)
Quarter: 2023Q2

REPORT INFORMATION
  Report Type: Report from Study
  Country: RO (occurrence: RO)
  Receive Date: 20230426
  Receipt Date: 20230426
  Transmission Date: 20230722
  Serious: Yes (Hospitalization)
  Sender: FDA-Public Use
  Company Number: RO-ABBVIE-4740904

PATIENT
  Age: 69 Year
  Sex: Male

DRUGS (2)
  1. DASABUVIR [Suspect]
     Active Substance: DASABUVIR
     Indication: Chronic hepatitis C
     Dosage: 1-0-1
     Route: 048
     Dates: start: 20221210, end: 20230203
  2. OMBITASVIR\PARITAPREVIR\RITONAVIR [Suspect]
     Active Substance: OMBITASVIR\PARITAPREVIR\RITONAVIR
     Indication: Chronic hepatitis C
     Dosage: 2-0-0
     Route: 048
     Dates: start: 20221210, end: 20230203

REACTIONS (1)
  - Nasopharyngitis [Recovering/Resolving]

NARRATIVE: CASE EVENT DATE: 20230419
